FAERS Safety Report 16974329 (Version 1)
Quarter: 2019Q4

REPORT INFORMATION
  Report Type: Spontaneous
  Country: US (occurrence: US)
  Receive Date: 20190913
  Receipt Date: 20190913
  Transmission Date: 20200122
  Serious: No
  Sender: FDA-Public Use
  Company Number: None

PATIENT
  Age: 32 Year
  Sex: Male

DRUGS (1)
  1. TASIGNA [Suspect]
     Active Substance: NILOTINIB
     Indication: COLON CANCER
     Route: 048
     Dates: start: 20190829

REACTIONS (3)
  - Rash [None]
  - Erythema [None]
  - Abdominal pain [None]

NARRATIVE: CASE EVENT DATE: 20190829
